FAERS Safety Report 18788192 (Version 1)
Quarter: 2021Q1

REPORT INFORMATION
  Report Type: Other
  Country: US (occurrence: US)
  Receive Date: 20210125
  Receipt Date: 20210125
  Transmission Date: 20210419
  Serious: No
  Sender: FDA-Public Use
  Company Number: US-ACORDA-ACO_164963_2020

PATIENT
  Sex: Female
  Weight: 68.03 kg

DRUGS (4)
  1. AMPYRA [Suspect]
     Active Substance: DALFAMPRIDINE
     Indication: MULTIPLE SCLEROSIS
     Dosage: 10 MILLIGRAM, BID
     Route: 048
  2. TYSABRI [Suspect]
     Active Substance: NATALIZUMAB
     Indication: MULTIPLE SCLEROSIS
     Dosage: 300 MILLIGRAM, 1 IN 4 WEEKS
     Route: 042
     Dates: start: 20060906, end: 20150306
  3. TYSABRI [Suspect]
     Active Substance: NATALIZUMAB
     Dosage: 300 MILLIGRAM, 1 IN 4 WEEKS
     Route: 042
     Dates: start: 20180328, end: 20180725
  4. TYSABRI [Suspect]
     Active Substance: NATALIZUMAB
     Dosage: 300 MILLIGRAM, 1 IN 4 WEEKS
     Route: 042
     Dates: start: 20200210

REACTIONS (3)
  - Asthenia [Not Recovered/Not Resolved]
  - Illness [Unknown]
  - Back pain [Not Recovered/Not Resolved]
